FAERS Safety Report 6210257-2 (Version None)
Quarter: 2009Q2

REPORT INFORMATION
  Report Type: 
  Country: None (occurrence: None)
  Receive Date: 20090601
  Receipt Date: 20090525
  Transmission Date: 20091009
  Serious: Yes (Hospitalization)
  Sender: FDA-Public Use
  Company Number: ES-BRISTOL-MYERS SQUIBB COMPANY-14583553

PATIENT
  Age: 60 Year

DRUGS (4)
  1. CETUXIMAB [Suspect]
     Indication: COLON CANCER
     Dosage: STRENGTH: 5MG/ML; RECENT INFUSION 28NOV07, 13DEC2007 RESTARTED
     Route: 042
     Dates: start: 20070706
  2. OXALIPLATIN [Suspect]
     Indication: COLON CANCER
     Dosage: RECENT INFUSION 21JUL07, 13DEC2007 RESTARTED
     Route: 042
     Dates: start: 20070706
  3. FLUOROURACIL [Suspect]
     Indication: COLON CANCER
     Dosage: RECENT INFUSION 02NOV07, 13DEC2007 RESTARTED
     Route: 042
     Dates: start: 20070706
  4. FOLINIC ACID [Suspect]
     Indication: COLON CANCER
     Dosage: RECENT INFUSION 22NOV07, 13DEC2007 RESTARTED
     Route: 042
     Dates: start: 20070706

REACTIONS (2)
  - AXILLARY VEIN THROMBOSIS [None]
  - SUBCLAVIAN VEIN THROMBOSIS [None]
